FAERS Safety Report 24888741 (Version 1)
Quarter: 2025Q1

REPORT INFORMATION
  Report Type: Spontaneous
  Country: US (occurrence: None)
  Receive Date: 20250124
  Receipt Date: 20250124
  Transmission Date: 20250409
  Serious: No
  Sender: FDA-CTU
  Company Number: None

PATIENT
  Sex: Male

DRUGS (1)
  1. GLYCEROL PHENYLBUTYRATE [Suspect]
     Active Substance: GLYCEROL PHENYLBUTYRATE
     Indication: Metabolic disorder
     Dosage: .9 ML TID PO?
     Route: 048
     Dates: start: 202403

REACTIONS (2)
  - Pneumonia [None]
  - Irritability [None]
